FAERS Safety Report 9148069 (Version 2)
Quarter: 2013Q1

REPORT INFORMATION
  Report Type: Spontaneous
  Country: PH (occurrence: PH)
  Receive Date: 20130308
  Receipt Date: 20130318
  Transmission Date: 20140127
  Serious: Yes (Death)
  Sender: FDA-Public Use
  Company Number: PH-009507513-1303PHL002126

PATIENT
  Age: 80 Year
  Sex: Male

DRUGS (1)
  1. COZAAR [Suspect]
     Dosage: ONE TABLET, ONCE A DAY
     Route: 048

REACTIONS (1)
  - Myocardial infarction [Fatal]
